FAERS Safety Report 10664017 (Version 1)
Quarter: 2014Q4

REPORT INFORMATION
  Report Type: Spontaneous
  Country: US (occurrence: None)
  Receive Date: 20141217
  Receipt Date: 20141217
  Transmission Date: 20150529
  Serious: Yes (Life-Threatening)
  Sender: FDA-Public Use
  Company Number: 001843165A

PATIENT
  Age: 14 Year
  Sex: Male

DRUGS (2)
  1. PROACTIV RENEWING CLEANSER [Suspect]
     Active Substance: BENZOYL PEROXIDE
     Indication: ACNE
     Dosage: ONCE DAILY DERMAL
     Dates: start: 201403
  2. PROACTIV REPAIRING TREATMENT [Suspect]
     Active Substance: BENZOYL PEROXIDE
     Indication: ACNE
     Dosage: ONCE DAILY DERMAL
     Dates: start: 201403

REACTIONS (1)
  - Anaphylactic reaction [None]

NARRATIVE: CASE EVENT DATE: 201403
